FAERS Safety Report 21532625 (Version 2)
Quarter: 2023Q2

REPORT INFORMATION
  Report Type: Report from Study
  Country: US (occurrence: US)
  Receive Date: 20221101
  Receipt Date: 20230515
  Transmission Date: 20230722
  Serious: Yes (Hospitalization)
  Sender: FDA-Public Use
  Company Number: US-ABBVIE-21K-163-4139257-00

PATIENT
  Sex: Male

DRUGS (6)
  1. HUMIRA [Suspect]
     Active Substance: ADALIMUMAB
     Indication: Crohn^s disease
     Dosage: CITRATE FREE, FORM STRENGTH: 40 MG
     Route: 058
  2. HUMIRA [Suspect]
     Active Substance: ADALIMUMAB
     Dosage: CITRATE FREE, FORM STRENGTH: 40 MG
     Route: 058
  3. HUMIRA [Suspect]
     Active Substance: ADALIMUMAB
     Dosage: CITRATE FREE, FORM STRENGTH: 40 MG
     Route: 058
     Dates: start: 20211019, end: 202112
  4. HUMIRA [Suspect]
     Active Substance: ADALIMUMAB
     Dosage: CITRATE FREE, FORM STRENGTH: 40 MG ?DOSE INCREASED
     Route: 058
     Dates: start: 2022
  5. CANNABIDIOL\HERBALS [Concomitant]
     Active Substance: CANNABIDIOL\HERBALS
     Indication: Product used for unknown indication
  6. MODERNA COVID-19 VACCINE [Concomitant]
     Active Substance: ELASOMERAN
     Indication: COVID-19 immunisation
     Dosage: TIME INTERVAL: TOTAL: ONCE
     Route: 030

REACTIONS (19)
  - Crohn^s disease [Not Recovered/Not Resolved]
  - Loss of personal independence in daily activities [Unknown]
  - Asthenia [Unknown]
  - Asthenia [Recovered/Resolved]
  - Sleep deficit [Unknown]
  - Impaired work ability [Recovered/Resolved]
  - Inappropriate schedule of product administration [Unknown]
  - Gastrointestinal sounds abnormal [Unknown]
  - Gastrointestinal sounds abnormal [Recovered/Resolved]
  - Insomnia [Recovered/Resolved]
  - Abdominal distension [Unknown]
  - Flatulence [Unknown]
  - Depressed mood [Not Recovered/Not Resolved]
  - Anxiety [Not Recovered/Not Resolved]
  - Depression [Unknown]
  - COVID-19 [Recovered/Resolved]
  - Drug level abnormal [Unknown]
  - Crohn^s disease [Recovered/Resolved]
  - Nausea [Unknown]

NARRATIVE: CASE EVENT DATE: 20210101
